FAERS Safety Report 23020371 (Version 1)
Quarter: 2023Q4

REPORT INFORMATION
  Report Type: Spontaneous
  Country: FR (occurrence: FR)
  Receive Date: 20231003
  Receipt Date: 20231003
  Transmission Date: 20240110
  Serious: Yes (Death, Other)
  Sender: FDA-Public Use
  Company Number: None

PATIENT
  Age: 49 Year
  Sex: Male
  Weight: 118 kg

DRUGS (1)
  1. OTEZLA [Suspect]
     Active Substance: APREMILAST
     Indication: Psoriasis
     Dosage: 30 MG 1-0-1
     Route: 048
     Dates: start: 202203, end: 20230906

REACTIONS (1)
  - Cerebral venous thrombosis [Fatal]

NARRATIVE: CASE EVENT DATE: 20230826
